FAERS Safety Report 7435124-8 (Version None)
Quarter: 2011Q2

REPORT INFORMATION
  Report Type: 
  Country: None (occurrence: None)
  Receive Date: 20110425
  Receipt Date: 20110415
  Transmission Date: 20111010
  Serious: Yes (Other)
  Sender: FDA-Public Use
  Company Number: PHHY2011FR33539

PATIENT
  Age: 51 Year
  Sex: Female

DRUGS (6)
  1. LIORESAL [Concomitant]
     Dosage: UNK
  2. LYRICA [Concomitant]
     Dosage: UNK
  3. LAROXYL [Concomitant]
     Dosage: UNK
  4. TARDYFERON [Concomitant]
     Dosage: UNK
  5. ACETAMINOPHEN AND TRAMADOL HCL [Concomitant]
  6. EXTAVIA [Suspect]
     Indication: MULTIPLE SCLEROSIS
     Dosage: 1 ML, TIW
     Route: 058

REACTIONS (6)
  - FATIGUE [None]
  - HYPOKALAEMIA [None]
  - FAECES DISCOLOURED [None]
  - VIOLENCE-RELATED SYMPTOM [None]
  - MENTAL DISORDER [None]
  - ABDOMINAL PAIN [None]
